FAERS Safety Report 6810161-2 (Version None)
Quarter: 2010Q2

REPORT INFORMATION
  Report Type: 
  Country: None (occurrence: None)
  Receive Date: 20100630
  Receipt Date: 20100528
  Transmission Date: 20101027
  Serious: Yes (Disabling)
  Sender: FDA-Public Use
  Company Number: JP-ALLERGAN-1006890US

PATIENT
  Age: 85 Year
  Sex: Female

DRUGS (13)
  1. LUMIGAN [Suspect]
     Indication: GLAUCOMA
     Dosage: 1 GTT, QD
     Route: 047
     Dates: start: 20100507, end: 20100517
  2. TRUSOPT [Suspect]
     Indication: GLAUCOMA
     Dosage: 1 GTT, BID
     Route: 047
     Dates: start: 20100507
  3. KARY UNI [Concomitant]
     Dosage: UNK
     Dates: start: 20090101
  4. RESCULA [Concomitant]
     Dosage: UNK
     Dates: start: 20090101, end: 20100517
  5. LIPITOR [Concomitant]
  6. WARFARIN POTASSIUM [Concomitant]
  7. OMEPRAZOLE [Concomitant]
  8. BLOPRESS [Concomitant]
  9. DIGOXIN [Concomitant]
  10. FOSAMAC [Concomitant]
  11. CYANOCOBALAMIN [Concomitant]
  12. LASIX [Concomitant]
  13. DEPAS [Concomitant]

REACTIONS (1)
  - MACULAR OEDEMA [None]
